FAERS Safety Report 7468406-4 (Version None)
Quarter: 2011Q2

REPORT INFORMATION
  Report Type: 
  Country: None (occurrence: None)
  Receive Date: 20110509
  Receipt Date: 20110505
  Transmission Date: 20111010
  Serious: Yes (Other)
  Sender: FDA-Public Use
  Company Number: CA-PFIZER INC-2011084531

PATIENT
  Age: 49 Year
  Sex: Female
  Weight: 99.8 kg

DRUGS (5)
  1. ASPIRIN [Concomitant]
     Dosage: UNK
  2. GLYBURIDE [Concomitant]
     Dosage: UNK
  3. CRESTOR [Concomitant]
     Dosage: UNK
  4. VARENICLINE TARTRATE [Suspect]
     Dosage: 0.5 MG, 2X/DAY
  5. METFORMIN [Concomitant]
     Dosage: UNK

REACTIONS (1)
  - BLOOD GLUCOSE INCREASED [None]
